FAERS Safety Report 5218469-1 (Version None)
Quarter: 2007Q1

REPORT INFORMATION
  Report Type: 
  Country: None (occurrence: None)
  Receive Date: 20061201
  Receipt Date: 20060411
  Transmission Date: 20070707
  Serious: Yes (Death)
  Sender: FDA-Public Use
  Company Number: SUS1-2006-00369

PATIENT
  Age: 13 Year
  Sex: Female

DRUGS (3)
  1. ADDERALL XR 10 [Suspect]
     Indication: ATTENTION DEFICIT/HYPERACTIVITY DISORDER
     Dosage: 40 MG, 1X/DAY:QD IN AM
     Dates: start: 20041201, end: 20060305
  2. GENERIC AMPHETAMINE PRODUCT [Concomitant]
  3. RISPERDAL [Concomitant]

REACTIONS (2)
  - PRESCRIBED OVERDOSE [None]
  - SUDDEN DEATH [None]
